FAERS Safety Report 6522725-4 (Version None)
Quarter: 2009Q4

REPORT INFORMATION
  Report Type: 
  Country: None (occurrence: None)
  Receive Date: 20091222
  Receipt Date: 20091207
  Transmission Date: 20100525
  Serious: Yes (Other)
  Sender: FDA-Public Use
  Company Number: 2009SP040364

PATIENT
  Age: 52 Year
  Sex: Female

DRUGS (2)
  1. REFLEX (MIRTAZAPINE) [Suspect]
     Indication: DRUG USE FOR UNKNOWN INDICATION
     Dosage: 3.75 MG; HS; PO
     Route: 048
     Dates: start: 20091201
  2. UNSPECIFIED DRUG (CON.) [Concomitant]

REACTIONS (4)
  - AGGRESSION [None]
  - CONDITION AGGRAVATED [None]
  - SELF INJURIOUS BEHAVIOUR [None]
  - TINNITUS [None]
